FAERS Safety Report 7360950-3 (Version None)
Quarter: 2011Q1

REPORT INFORMATION
  Report Type: 
  Country: None (occurrence: None)
  Receive Date: 20110315
  Receipt Date: 20110315
  Transmission Date: 20110831
  Serious: Yes (Death)
  Sender: FDA-Public Use
  Company Number: None

PATIENT
  Age: 44 Year
  Sex: Male
  Weight: 109.7 kg

DRUGS (12)
  1. BENZTROPINE MESYLATE [Concomitant]
  2. SIMVASTATIN [Concomitant]
  3. ASENAPINE 10 MG MERCK [Suspect]
     Indication: SCHIZOPHRENIA
     Dosage: 10 MG BID SL
     Route: 060
     Dates: start: 20110204, end: 20110220
  4. METOPROLOL TARTRATE [Concomitant]
  5. FLUOXETINE [Suspect]
     Indication: SCHIZOPHRENIA
     Dosage: 80 MG DAILY PO
     Route: 048
     Dates: start: 20110128, end: 20110220
  6. LISINOPRIL [Concomitant]
  7. CLOZAPINE [Concomitant]
  8. HYDROXYZINE [Concomitant]
  9. GLIPIZIDE [Concomitant]
  10. LEVOTHYROXINE SODIUM [Concomitant]
  11. ECT TREATMENTS [Concomitant]
  12. AMLODIPINE BESYLATE [Concomitant]

REACTIONS (1)
  - UNRESPONSIVE TO STIMULI [None]
